FAERS Safety Report 25041750 (Version 3)
Quarter: 2025Q2

REPORT INFORMATION
  Report Type: Report from Study
  Country: US (occurrence: US)
  Receive Date: 20250305
  Receipt Date: 20250430
  Transmission Date: 20250716
  Serious: Yes (Hospitalization)
  Sender: ALNYLAM PHARMACEUTICALS
  Company Number: US-ALNYLAM PHARMACEUTICALS, INC.-ALN-2025-001513

PATIENT

DRUGS (17)
  1. AMVUTTRA [Suspect]
     Active Substance: VUTRISIRAN
     Indication: Amyloidosis
     Dosage: 25 MILLIGRAM, Q3M
     Route: 058
  2. CAMZYOS [Concomitant]
     Active Substance: MAVACAMTEN
     Indication: Cardiac hypertrophy
     Route: 065
  3. CAMZYOS [Concomitant]
     Active Substance: MAVACAMTEN
     Indication: Cardiac failure
  4. ELIQUIS [Concomitant]
     Active Substance: APIXABAN
     Indication: Atrial fibrillation
     Dosage: 2.5 MILLIGRAM, BID
     Route: 048
  5. ELIQUIS [Concomitant]
     Active Substance: APIXABAN
     Indication: Atrial flutter
  6. LASIX [Concomitant]
     Active Substance: FUROSEMIDE
     Indication: Diuretic therapy
     Dosage: 40 MILLIGRAM, BID
     Route: 048
  7. LASIX [Concomitant]
     Active Substance: FUROSEMIDE
     Dosage: 40 MILLIGRAM, BID
     Route: 042
     Dates: start: 202501
  8. JARDIANCE [Concomitant]
     Active Substance: EMPAGLIFLOZIN
     Indication: Pleural effusion
     Dosage: 10 MILLIGRAM, QD
     Route: 048
     Dates: start: 20250121
  9. CEFDINIR [Concomitant]
     Active Substance: CEFDINIR
     Indication: Product used for unknown indication
     Route: 065
  10. MAVACAMTEN [Concomitant]
     Active Substance: MAVACAMTEN
     Indication: Hypertrophic cardiomyopathy
     Dosage: 5 MILLIGRAM, QD
     Route: 048
  11. PACERONE [Concomitant]
     Active Substance: AMIODARONE HYDROCHLORIDE
     Indication: Atrial fibrillation
     Dosage: 100 MILLIGRAM, BID
     Route: 048
  12. PACERONE [Concomitant]
     Active Substance: AMIODARONE HYDROCHLORIDE
     Indication: Atrial flutter
  13. FLOMAX [Concomitant]
     Active Substance: TAMSULOSIN HYDROCHLORIDE
     Indication: Benign prostatic hyperplasia
     Dosage: 0.8 MILLIGRAM, QD
     Route: 048
  14. PROSCAR [Concomitant]
     Active Substance: FINASTERIDE
     Indication: Benign prostatic hyperplasia
     Dosage: 5 MILLIGRAM, QD
     Route: 048
  15. LIPITOR [Concomitant]
     Active Substance: ATORVASTATIN CALCIUM
     Indication: Blood cholesterol
     Dosage: 40 MILLIGRAM, QD (NIGHTLY)
     Route: 048
  16. ASPIRIN [Concomitant]
     Active Substance: ASPIRIN
     Indication: Product used for unknown indication
     Dosage: 81 MILLIGRAM, QD
     Route: 048
  17. TOPROL XL [Concomitant]
     Active Substance: METOPROLOL SUCCINATE
     Indication: Product used for unknown indication
     Dosage: 100 MILLIGRAM, QD
     Route: 048

REACTIONS (1)
  - Cardiac failure acute [Recovered/Resolved]
